FAERS Safety Report 23425586 (Version 1)
Quarter: 2024Q1

REPORT INFORMATION
  Report Type: Spontaneous
  Country: JP (occurrence: JP)
  Receive Date: 20240122
  Receipt Date: 20240122
  Transmission Date: 20240409
  Serious: Yes (Hospitalization, Other)
  Sender: FDA-Public Use
  Company Number: JP-IPCA LABORATORIES LIMITED-IPC-2024-JP-000123

PATIENT

DRUGS (3)
  1. WARFARIN [Suspect]
     Active Substance: WARFARIN
     Indication: Antiphospholipid syndrome
     Dosage: 1 MILLIGRAM
     Route: 048
  2. WARFARIN [Suspect]
     Active Substance: WARFARIN
     Dosage: 2 MILLIGRAM
     Route: 048
  3. HEPARIN [Suspect]
     Active Substance: HEPARIN SODIUM
     Indication: Antiphospholipid syndrome
     Dosage: 100 INTERNATIONAL UNIT/KILOGRAM
     Route: 042

REACTIONS (7)
  - Adrenal insufficiency [Recovering/Resolving]
  - Ileus paralytic [Unknown]
  - Haemorrhagic adrenal infarction [Unknown]
  - Shock [Unknown]
  - Back pain [Unknown]
  - Haematoma [Unknown]
  - Procedural haemorrhage [Unknown]
